FAERS Safety Report 24339458 (Version 4)
Quarter: 2025Q2

REPORT INFORMATION
  Report Type: Spontaneous
  Country: CA (occurrence: CA)
  Receive Date: 20240919
  Receipt Date: 20250425
  Transmission Date: 20250717
  Serious: Yes (Other)
  Sender: ANI
  Company Number: CA-ANIPHARMA-2024-CA-004035

PATIENT
  Age: 53 Year
  Sex: Male

DRUGS (103)
  1. CANDESARTAN [Suspect]
     Active Substance: CANDESARTAN
     Indication: Product used for unknown indication
     Route: 048
  2. AZD-1222 [Suspect]
     Active Substance: AZD-1222
  3. Rennie [Concomitant]
  4. NAPHAZOLINE [Concomitant]
     Active Substance: NAPHAZOLINE\NAPHAZOLINE HYDROCHLORIDE
  5. PARAFFIN [Concomitant]
     Active Substance: PARAFFIN
  6. CALCIUM CARBONATE\CHOLECALCIFEROL [Concomitant]
     Active Substance: CALCIUM CARBONATE\CHOLECALCIFEROL
  7. GAVISCON [Concomitant]
     Active Substance: ALUMINUM HYDROXIDE\MAGNESIUM CARBONATE
  8. LATANOPROST [Concomitant]
     Active Substance: LATANOPROST
  9. NITROFURANTOIN [Concomitant]
     Active Substance: NITROFURANTOIN
  10. OMEPRAZOLE [Concomitant]
     Active Substance: OMEPRAZOLE
  11. EPINEPHRINE HYDROCHLORIDE [Suspect]
     Active Substance: EPINEPHRINE HYDROCHLORIDE
  12. ESCITALOPRAM [Suspect]
     Active Substance: ESCITALOPRAM OXALATE
  13. FUROSEMIDE [Suspect]
     Active Substance: FUROSEMIDE
  14. GABAPENTIN [Suspect]
     Active Substance: GABAPENTIN
  15. INFLECTRA [Suspect]
     Active Substance: INFLIXIMAB-DYYB
     Route: 042
  16. LEVOTHYROXINE SODIUM [Suspect]
     Active Substance: LEVOTHYROXINE SODIUM
  17. LISDEXAMFETAMINE DIMESYLATE [Suspect]
     Active Substance: LISDEXAMFETAMINE DIMESYLATE
  18. MEBEVERINE HYDROCHLORIDE [Suspect]
     Active Substance: MEBEVERINE HYDROCHLORIDE
  19. METFORMIN [Suspect]
     Active Substance: METFORMIN HYDROCHLORIDE
  20. OMEPRAZOLE [Suspect]
     Active Substance: OMEPRAZOLE
  21. OXYCODONE [Suspect]
     Active Substance: OXYCODONE
  22. PARA-AMINOSALICYLIC ACID [Suspect]
     Active Substance: AMINOSALICYLIC ACID
  23. COMIRNATY (TOZINAMERAN) [Suspect]
     Active Substance: TOZINAMERAN
  24. VITAMIN D3 [Suspect]
     Active Substance: CHOLECALCIFEROL
  25. ASACOL [Suspect]
     Active Substance: MESALAMINE
  26. BUDESONIDE [Suspect]
     Active Substance: BUDESONIDE
     Route: 048
  27. ENTYVIO [Suspect]
     Active Substance: VEDOLIZUMAB
  28. MESALAMINE [Suspect]
     Active Substance: MESALAMINE
  29. SULFASALAZINE [Suspect]
     Active Substance: SULFASALAZINE
     Route: 048
  30. ACETAMINOPHEN [Concomitant]
     Active Substance: ACETAMINOPHEN
  31. DAPAGLIFLOZIN [Suspect]
     Active Substance: DAPAGLIFLOZIN
  32. AMLODIPINE BESYLATE [Concomitant]
     Active Substance: AMLODIPINE BESYLATE
  33. ATORVASTATIN CALCIUM [Concomitant]
     Active Substance: ATORVASTATIN CALCIUM
  34. BETNOVATE [Concomitant]
     Active Substance: BETAMETHASONE
  35. BISOPROLOL [Concomitant]
     Active Substance: BISOPROLOL
  36. CALCIUM CARBONATE, MAGNESIUM CARBONATE HYDROXIDE [Concomitant]
  37. CALCIUM CARBONATE, SODIUM ALGINATE, SODIUM BICARBONATE [Concomitant]
  38. CALCIUM\CHOLECALCIFEROL [Concomitant]
     Active Substance: CALCIUM\CHOLECALCIFEROL
  39. CITALOPRAM HYDROCHLORIDE [Concomitant]
     Active Substance: CITALOPRAM HYDROCHLORIDE
  40. ADALIMUMAB [Suspect]
     Active Substance: ADALIMUMAB
     Route: 058
  41. CLOBETASONE BUTYRATE [Concomitant]
     Active Substance: CLOBETASONE BUTYRATE
  42. DORZOLAMIDE HYDROCHLORIDE [Concomitant]
     Active Substance: DORZOLAMIDE HYDROCHLORIDE
  43. EMPAGLIFLOZIN [Concomitant]
     Active Substance: EMPAGLIFLOZIN
  44. FESOTERODINE FUMARATE [Concomitant]
     Active Substance: FESOTERODINE FUMARATE
  45. LANSOPRAZOLE [Concomitant]
     Active Substance: LANSOPRAZOLE
  46. LATANOPROST [Concomitant]
     Active Substance: LATANOPROST
  47. LYRICA [Concomitant]
     Active Substance: PREGABALIN
  48. POLYETHYLENE GLYCOLS [Concomitant]
     Active Substance: POLYETHYLENE GLYCOLS
  49. NITROFURANTOIN [Concomitant]
     Active Substance: NITROFURANTOIN
  50. FELODIPINE [Suspect]
     Active Substance: FELODIPINE
     Route: 048
  51. PARAFFIN [Concomitant]
     Active Substance: PARAFFIN
  52. PRAVASTATIN [Concomitant]
     Active Substance: PRAVASTATIN
  53. RAMIPRIL [Concomitant]
     Active Substance: RAMIPRIL
  54. RIVAROXABAN [Concomitant]
     Active Substance: RIVAROXABAN
  55. TAMSULOSIN [Concomitant]
     Active Substance: TAMSULOSIN
  56. TOFACITINIB CITRATE [Concomitant]
     Active Substance: TOFACITINIB CITRATE
  57. ALUMINUM HYDROXIDE [Concomitant]
     Active Substance: ALUMINUM HYDROXIDE
  58. ACETAMINOPHEN [Suspect]
     Active Substance: ACETAMINOPHEN
  59. ALBENDAZOLE [Suspect]
     Active Substance: ALBENDAZOLE
     Route: 042
  60. CORTIFOAM [Suspect]
     Active Substance: HYDROCORTISONE ACETATE
     Route: 048
  61. ESOMEPRAZOLE [Suspect]
     Active Substance: ESOMEPRAZOLE
  62. CORTISONE [Suspect]
     Active Substance: CORTISONE
     Route: 048
  63. DESOXIMETASONE [Suspect]
     Active Substance: DESOXIMETASONE
     Route: 048
  64. HUMIRA [Suspect]
     Active Substance: ADALIMUMAB
  65. HYDROCORTISONE [Suspect]
     Active Substance: HYDROCORTISONE
     Route: 048
  66. INFLIXIMAB [Suspect]
     Active Substance: INFLIXIMAB
     Route: 042
  67. LISDEXAMFETAMINE DIMESYLATE [Suspect]
     Active Substance: LISDEXAMFETAMINE DIMESYLATE
  68. MESALAMINE [Suspect]
     Active Substance: MESALAMINE
     Route: 048
     Dates: start: 201601, end: 201610
  69. ACETAMINOPHEN [Suspect]
     Active Substance: ACETAMINOPHEN
  70. WARFARIN [Suspect]
     Active Substance: WARFARIN
  71. NEXIUM 24HR [Suspect]
     Active Substance: ESOMEPRAZOLE MAGNESIUM
  72. ROSUVASTATIN CALCIUM [Suspect]
     Active Substance: ROSUVASTATIN CALCIUM
  73. MESALAMINE [Suspect]
     Active Substance: MESALAMINE
     Route: 048
     Dates: start: 201601, end: 201610
  74. PREDNISONE [Suspect]
     Active Substance: PREDNISONE
  75. CHOLECALCIFEROL [Suspect]
     Active Substance: CHOLECALCIFEROL
  76. MEBEVERINE HYDROCHLORIDE [Suspect]
     Active Substance: MEBEVERINE HYDROCHLORIDE
  77. METFORMIN [Suspect]
     Active Substance: METFORMIN HYDROCHLORIDE
  78. AMINOSALICYLIC ACID [Suspect]
     Active Substance: AMINOSALICYLIC ACID
  79. REMICADE [Suspect]
     Active Substance: INFLIXIMAB
     Route: 042
  80. CRESTOR [Suspect]
     Active Substance: ROSUVASTATIN CALCIUM
  81. MESALAMINE [Suspect]
     Active Substance: MESALAMINE
     Route: 048
  82. VYVANSE [Suspect]
     Active Substance: LISDEXAMFETAMINE DIMESYLATE
  83. BUDESONIDE [Suspect]
     Active Substance: BUDESONIDE
     Route: 048
  84. WARFARIN [Suspect]
     Active Substance: WARFARIN
     Route: 048
  85. VEDOLIZUMAB [Suspect]
     Active Substance: VEDOLIZUMAB
     Route: 048
     Dates: end: 2017
  86. TOZINAMERAN [Suspect]
     Active Substance: TOZINAMERAN
     Dates: start: 20220322, end: 20220322
  87. WARFARIN SODIUM [Suspect]
     Active Substance: WARFARIN SODIUM
     Route: 048
     Dates: end: 2019
  88. DEVICE [Suspect]
     Active Substance: DEVICE
  89. ALGINIC ACID [Concomitant]
     Active Substance: ALGINIC ACID
  90. ATORVASTATIN [Concomitant]
     Active Substance: ATORVASTATIN
  91. CALCIUM CARBONATE [Concomitant]
     Active Substance: CALCIUM CARBONATE
  92. DAPAGLIFLOZIN [Concomitant]
     Active Substance: DAPAGLIFLOZIN
  93. DORZOLAMIDE HYDROCHLORIDE [Concomitant]
     Active Substance: DORZOLAMIDE HYDROCHLORIDE
  94. ASPIRIN [Suspect]
     Active Substance: ASPIRIN
  95. FOLIC ACID [Concomitant]
     Active Substance: FOLIC ACID
  96. ROSUVASTATIN CALCIUM [Concomitant]
     Active Substance: ROSUVASTATIN CALCIUM
  97. SULFASALAZINE [Concomitant]
     Active Substance: SULFASALAZINE
  98. METHOTREXATE [Concomitant]
     Active Substance: METHOTREXATE
  99. TETRAHYDROZOLINE HYDROCHLORIDE [Concomitant]
     Active Substance: TETRAHYDROZOLINE HYDROCHLORIDE
  100. XELJANZ [Concomitant]
     Active Substance: TOFACITINIB CITRATE
  101. MOVICOL [Concomitant]
     Active Substance: POLYETHYLENE GLYCOL 3350\POTASSIUM CHLORIDE\SODIUM BICARBONATE\SODIUM CHLORIDE
  102. Zerobase [Concomitant]
  103. POLYETHYLENE GLYCOL 3350\POTASSIUM CHLORIDE\SODIUM BICARBONATE\SODIUM [Concomitant]
     Active Substance: POLYETHYLENE GLYCOL 3350\POTASSIUM CHLORIDE\SODIUM BICARBONATE\SODIUM CHLORIDE

REACTIONS (53)
  - Abdominal discomfort [Unknown]
  - Colitis ulcerative [Unknown]
  - Condition aggravated [Unknown]
  - Confusional state [Unknown]
  - Deep vein thrombosis [Unknown]
  - Depression [Unknown]
  - Dysgeusia [Unknown]
  - Eczema [Unknown]
  - Fatigue [Unknown]
  - Frequent bowel movements [Unknown]
  - Gingival pain [Unknown]
  - Accidental overdose [Unknown]
  - Haematochezia [Unknown]
  - Headache [Unknown]
  - Hypopnoea [Unknown]
  - Impaired work ability [Unknown]
  - Inappropriate schedule of product administration [Unknown]
  - Intentional product use issue [Unknown]
  - Loss of personal independence in daily activities [Unknown]
  - Medication error [Unknown]
  - Migraine [Unknown]
  - Nightmare [Unknown]
  - Arthritis [Unknown]
  - Off label use [Unknown]
  - Pain [Unknown]
  - Pain in extremity [Unknown]
  - Palpitations [Unknown]
  - Parosmia [Unknown]
  - Pulmonary embolism [Unknown]
  - Pyrexia [Unknown]
  - Rash [Unknown]
  - Rectal haemorrhage [Unknown]
  - Rhinitis [Unknown]
  - Burns second degree [Unknown]
  - Somnolence [Unknown]
  - Stress [Unknown]
  - Swollen tongue [Unknown]
  - Systemic lupus erythematosus [Unknown]
  - Tinnitus [Unknown]
  - Tubulointerstitial nephritis [Unknown]
  - Vertigo [Unknown]
  - Weight decreased [Unknown]
  - Drug ineffective [Unknown]
  - Bronchiectasis [Unknown]
  - Alcohol poisoning [Unknown]
  - Adverse drug reaction [Unknown]
  - Impaired quality of life [Unknown]
  - Steroid dependence [Unknown]
  - Off label use [Unknown]
  - COVID-19 [Unknown]
  - Cardiac murmur [Unknown]
  - Catarrh [Unknown]
  - Cerebrovascular accident [Unknown]
